FAERS Safety Report 17570374 (Version 1)
Quarter: 2020Q1

REPORT INFORMATION
  Report Type: Spontaneous
  Country: CN (occurrence: CN)
  Receive Date: 20200323
  Receipt Date: 20200323
  Transmission Date: 20200409
  Serious: Yes (Other)
  Sender: FDA-Public Use
  Company Number: CN-ROCHE-2566229

PATIENT
  Age: 53 Year
  Sex: Female

DRUGS (9)
  1. HERCEPTIN [Suspect]
     Active Substance: TRASTUZUMAB
     Indication: INVASIVE DUCTAL BREAST CARCINOMA
     Route: 065
  2. LAPATINIB [Concomitant]
     Active Substance: LAPATINIB
     Indication: INVASIVE DUCTAL BREAST CARCINOMA
  3. VINORELBINE [Concomitant]
     Active Substance: VINORELBINE TARTRATE
     Indication: INVASIVE DUCTAL BREAST CARCINOMA
  4. CYCLOPHOSPHAMIDE. [Concomitant]
     Active Substance: CYCLOPHOSPHAMIDE
     Indication: INVASIVE DUCTAL BREAST CARCINOMA
  5. CAPECITABINE. [Concomitant]
     Active Substance: CAPECITABINE
     Indication: INVASIVE DUCTAL BREAST CARCINOMA
     Route: 048
  6. PYROTINIB MALEATE [Concomitant]
     Indication: INVASIVE DUCTAL BREAST CARCINOMA
  7. PACLITAXEL. [Concomitant]
     Active Substance: PACLITAXEL
     Indication: INVASIVE DUCTAL BREAST CARCINOMA
  8. TOREMIFENE [Concomitant]
     Active Substance: TOREMIFENE
     Route: 065
     Dates: start: 201603, end: 201806
  9. EPIRUBICIN [Concomitant]
     Active Substance: EPIRUBICIN
     Indication: INVASIVE DUCTAL BREAST CARCINOMA

REACTIONS (7)
  - Vomiting [Unknown]
  - Neoplasm [Unknown]
  - Tricuspid valve incompetence [Unknown]
  - Liver injury [Unknown]
  - Mitral valve incompetence [Unknown]
  - Diarrhoea [Unknown]
  - Pulmonary valve incompetence [Unknown]
